FAERS Safety Report 7078588-4 (Version None)
Quarter: 2010Q4

REPORT INFORMATION
  Report Type: 
  Country: None (occurrence: None)
  Receive Date: 20101102
  Receipt Date: 20101019
  Transmission Date: 20110411
  Serious: Yes (Other)
  Sender: FDA-Public Use
  Company Number: DE-RANBAXY-2010RR-36555

PATIENT
  Age: 37 Year
  Sex: Female

DRUGS (2)
  1. RISPERIDONE [Suspect]
     Dosage: 1 MG, UNK
  2. VENLAFAXINE [Concomitant]
     Dosage: 300 MG, UNK

REACTIONS (4)
  - DRUG TOXICITY [None]
  - HYPOTENSION [None]
  - NAUSEA [None]
  - VOMITING [None]
